FAERS Safety Report 11089771 (Version 1)
Quarter: 2015Q2

REPORT INFORMATION
  Report Type: Spontaneous
  Country: BR (occurrence: BR)
  Receive Date: 20150505
  Receipt Date: 20150505
  Transmission Date: 20150821
  Serious: Yes (Hospitalization)
  Sender: FDA-Public Use
  Company Number: BR-JNJFOC-20150420822

PATIENT
  Age: 5 Month
  Sex: Male

DRUGS (1)
  1. MICRONOR [Suspect]
     Active Substance: NORETHINDRONE
     Indication: EXPOSURE DURING BREAST FEEDING
     Route: 063

REACTIONS (2)
  - Fall [Unknown]
  - Exposure during breast feeding [Not Recovered/Not Resolved]
